FAERS Safety Report 25450957 (Version 1)
Quarter: 2025Q2

REPORT INFORMATION
  Report Type: Spontaneous
  Country: GB (occurrence: GB)
  Receive Date: 20250618
  Receipt Date: 20250618
  Transmission Date: 20250716
  Serious: Yes (Other)
  Sender: TEVA
  Company Number: None

PATIENT
  Sex: Female

DRUGS (1)
  1. RANOLAZINE [Suspect]
     Active Substance: RANOLAZINE
     Indication: Product used for unknown indication
     Dosage: 375MG TWICE DAILY, 750 MG DAILY
     Route: 065
     Dates: start: 20250404

REACTIONS (3)
  - Headache [Recovered/Resolved]
  - Swollen tongue [Recovered/Resolved]
  - Vision blurred [Recovered/Resolved]
